FAERS Safety Report 5069494-5 (Version None)
Quarter: 2006Q3

REPORT INFORMATION
  Report Type: 
  Country: None (occurrence: None)
  Receive Date: 20060714
  Receipt Date: 20060321
  Transmission Date: 20061208
  Serious: No
  Sender: FDA-Public Use
  Company Number: 2006SP001319

PATIENT
  Age: 44 Year
  Sex: Female
  Weight: 79.3795 kg

DRUGS (8)
  1. LUNESTA [Suspect]
     Indication: INSOMNIA
     Dosage: SEE IMAGE
     Route: 048
     Dates: start: 20060301, end: 20060301
  2. LUNESTA [Suspect]
     Indication: INSOMNIA
     Dosage: SEE IMAGE
     Route: 048
     Dates: start: 20060301
  3. KLONOPIN [Concomitant]
  4. DOXYCYCLINE [Concomitant]
  5. ALBUTEROL [Concomitant]
  6. METHEDRINE [Concomitant]
  7. AMBIEN [Concomitant]
  8. RESTORIL [Concomitant]

REACTIONS (1)
  - DYSGEUSIA [None]
